FAERS Safety Report 16561366 (Version 1)
Quarter: 2019Q3

REPORT INFORMATION
  Report Type: Spontaneous
  Country: US (occurrence: US)
  Receive Date: 20190711
  Receipt Date: 20190711
  Transmission Date: 20191004
  Serious: Yes (Hospitalization, Other)
  Sender: FDA-Public Use
  Company Number: US-ASTRAZENECA-2019SE96757

PATIENT
  Age: 69 Year
  Sex: Female
  Weight: 86.2 kg

DRUGS (2)
  1. OXYGEN. [Concomitant]
     Active Substance: OXYGEN
     Dosage: CONTINUOUSLY
  2. SYMBICORT [Suspect]
     Active Substance: BUDESONIDE\FORMOTEROL FUMARATE DIHYDRATE
     Indication: CHRONIC OBSTRUCTIVE PULMONARY DISEASE
     Dosage: 80/4.5 MCG FOR COPD, ONE PUFF TWICE A DAY,
     Route: 055
     Dates: start: 2010

REACTIONS (11)
  - Hip fracture [Recovered/Resolved]
  - Rib fracture [Recovered/Resolved]
  - Osteoporosis [Recovering/Resolving]
  - Product dose omission [Not Recovered/Not Resolved]
  - Body height decreased [Unknown]
  - Memory impairment [Not Recovered/Not Resolved]
  - Apparent death [Unknown]
  - Myocardial infarction [Recovered/Resolved]
  - Spinal fracture [Recovered/Resolved]
  - Dyspnoea [Recovered/Resolved]
  - Product use issue [Unknown]

NARRATIVE: CASE EVENT DATE: 2016
